FAERS Safety Report 5596351-8 (Version None)
Quarter: 2007Q4

REPORT INFORMATION
  Report Type: 
  Country: None (occurrence: None)
  Receive Date: 20071219
  Receipt Date: 20070216
  Transmission Date: 20080405
  Serious: Yes (Other)
  Sender: FDA-Public Use
  Company Number: PHEH2006US11546

PATIENT
  Age: 60 Year
  Sex: Male

DRUGS (2)
  1. AREDIA [Suspect]
  2. ZOMETA [Suspect]

REACTIONS (9)
  - ABSCESS [None]
  - BONE DISORDER [None]
  - ERYTHEMA [None]
  - GINGIVAL PAIN [None]
  - LYMPHADENOPATHY [None]
  - ORAL DISORDER [None]
  - PAIN [None]
  - SWELLING [None]
  - TOOTH FRACTURE [None]
